FAERS Safety Report 6127804-1 (Version None)
Quarter: 2009Q1

REPORT INFORMATION
  Report Type: 
  Country: None (occurrence: None)
  Receive Date: 20090323
  Receipt Date: 20090317
  Transmission Date: 20090719
  Serious: Yes (Death, Life-Threatening)
  Sender: FDA-Public Use
  Company Number: IT-AVENTIS-200911217EU

PATIENT
  Age: 88 Year
  Sex: Female

DRUGS (3)
  1. CLEXANE [Suspect]
     Indication: MITRAL VALVE REPLACEMENT
     Route: 058
     Dates: start: 20090228, end: 20090228
  2. COUMADIN [Concomitant]
     Indication: MITRAL VALVE REPLACEMENT
  3. ANTIHYPERTENSIVES [Concomitant]

REACTIONS (1)
  - THROMBOCYTOPENIA [None]
